FAERS Safety Report 8012439-6 (Version None)
Quarter: 2011Q4

REPORT INFORMATION
  Report Type: 
  Country: None (occurrence: None)
  Receive Date: 20111228
  Receipt Date: 20111220
  Transmission Date: 20120403
  Serious: Yes (Hospitalization)
  Sender: FDA-Public Use
  Company Number: BR-ALLERGAN-1116673US

PATIENT
  Age: 65 Year
  Sex: Female

DRUGS (3)
  1. CALCIUM ACETATE [Concomitant]
  2. LOVAZA [Concomitant]
  3. BOTULINUM TOXIN TYPE A [Suspect]
     Indication: SKIN WRINKLING
     Dosage: UNK
     Route: 030
     Dates: start: 20111216, end: 20111216

REACTIONS (1)
  - PULMONARY EMBOLISM [None]
